FAERS Safety Report 7911817-0 (Version None)
Quarter: 2011Q4

REPORT INFORMATION
  Report Type: 
  Country: None (occurrence: None)
  Receive Date: 20111114
  Receipt Date: 20111103
  Transmission Date: 20120403
  Serious: Yes (Other)
  Sender: FDA-Public Use
  Company Number: CH-JNJFOC-20111012058

PATIENT
  Sex: Female
  Weight: 48.2 kg

DRUGS (6)
  1. PALIPERIDONE [Suspect]
     Indication: SCHIZOAFFECTIVE DISORDER
     Route: 030
     Dates: start: 20111026
  2. PALIPERIDONE [Suspect]
     Route: 030
     Dates: start: 20110625
  3. CITALOPRAM HYDROBROMIDE [Concomitant]
     Indication: DEPRESSION
     Dosage: IN THE MORNING
     Route: 065
  4. DEANXIT [Concomitant]
     Dosage: 0.5 MG AS NEEDED
     Route: 065
  5. RISPERDAL CONSTA [Suspect]
     Indication: PRODUCT USED FOR UNKNOWN INDICATION
     Route: 030
     Dates: end: 20110601
  6. LORAZEPAM [Concomitant]
     Dosage: AS NEEDED
     Route: 065

REACTIONS (2)
  - INJURY [None]
  - PSYCHOTIC DISORDER [None]
